FAERS Safety Report 6094408-9 (Version None)
Quarter: 2009Q1

REPORT INFORMATION
  Report Type: 
  Country: None (occurrence: None)
  Receive Date: 20090226
  Receipt Date: 20090127
  Transmission Date: 20090719
  Serious: Yes (Life-Threatening, Hospitalization)
  Sender: FDA-Public Use
  Company Number: US-BRISTOL-MYERS SQUIBB COMPANY-14520936

PATIENT
  Age: 73 Year
  Sex: Female
  Weight: 48 kg

DRUGS (19)
  1. CARBOPLATIN [Suspect]
     Indication: NON-SMALL CELL LUNG CANCER
     Dosage: 1ST INF: 13-NOV-2008 AND 3RD INF: 24-DEC-2008
     Route: 042
     Dates: start: 20081113, end: 20081224
  2. CETUXIMAB [Suspect]
     Indication: NON-SMALL CELL LUNG CANCER
     Dosage: 1ST INF: 13-NOV-2008. 11TH INF: 22-JAN-2009
     Route: 042
     Dates: start: 20081113, end: 20090122
  3. PACLITAXEL [Suspect]
     Indication: NON-SMALL CELL LUNG CANCER
     Dosage: 1ST INF: 13-NOV-2008 AND 3RD INF: 24-DEC-2008
     Route: 042
     Dates: start: 20081113, end: 20081224
  4. BEVACIZUMAB [Suspect]
     Indication: NON-SMALL CELL LUNG CANCER
     Dosage: 1ST INF: 13-NOV-2008 AND 3RD INF: 31-DEC-2008
     Route: 042
     Dates: start: 20081120, end: 20081231
  5. FOSAMAX [Concomitant]
  6. EVISTA [Concomitant]
  7. INDERAL LA [Concomitant]
  8. AMLODIPINE [Concomitant]
  9. LISINOPRIL [Concomitant]
  10. LIPITOR [Concomitant]
  11. TYLENOL [Concomitant]
  12. SPIRIVA [Concomitant]
  13. COMPAZINE [Concomitant]
  14. DARVOCET-N 100 [Concomitant]
     Dosage: DOSE TAKEN AS 100MG, Q4H PRN.
  15. MAGNESIUM OXIDE [Concomitant]
  16. CLINDAMYCIN HCL [Concomitant]
  17. DOXYCYCLINE [Concomitant]
  18. DYAZIDE [Concomitant]
  19. SYNTHROID [Concomitant]

REACTIONS (4)
  - ACUTE MYOCARDIAL INFARCTION [None]
  - BLOOD SODIUM DECREASED [None]
  - HAEMOGLOBIN DECREASED [None]
  - PNEUMONIA [None]
